FAERS Safety Report 5753998-3 (Version None)
Quarter: 2008Q2

REPORT INFORMATION
  Report Type: 
  Country: None (occurrence: None)
  Receive Date: 20080507
  Receipt Date: 20080515
  Transmission Date: 20081010
  Serious: Yes (Death)
  Sender: FDA-Public Use
  Company Number: 08P-087-0452303-00

PATIENT
  Age: 3 Month
  Sex: Female

DRUGS (9)
  1. SYNAGIS [Suspect]
     Indication: ANTIVIRAL PROPHYLAXIS
     Dosage: (50 MG, 50 MG), INTRAMUSCULAR, (50 MG, 50 MG), INTRAMUSCULAR, (50 MG, 50 MG), INTRAMUSCULAR
     Route: 030
     Dates: start: 20071101, end: 20071101
  2. SYNAGIS [Suspect]
     Indication: ANTIVIRAL PROPHYLAXIS
     Dosage: (50 MG, 50 MG), INTRAMUSCULAR, (50 MG, 50 MG), INTRAMUSCULAR, (50 MG, 50 MG), INTRAMUSCULAR
     Route: 030
     Dates: start: 20071207, end: 20071207
  3. SYNAGIS [Suspect]
     Indication: ANTIVIRAL PROPHYLAXIS
     Dosage: (50 MG, 50 MG), INTRAMUSCULAR, (50 MG, 50 MG), INTRAMUSCULAR, (50 MG, 50 MG), INTRAMUSCULAR
     Route: 030
     Dates: start: 20080110, end: 20080110
  4. FUROSEMIDE [Concomitant]
  5. SPIRONOLACTONE [Concomitant]
  6. L-CARBOCISTEINE [Concomitant]
  7. AMBROXOL HYDROCHLORIDE [Concomitant]
  8. TIPEPIDINE HIBENZATE [Concomitant]
  9. TULOBUTEROL [Concomitant]

REACTIONS (2)
  - CARDIO-RESPIRATORY ARREST [None]
  - RESPIRATORY SYNCYTIAL VIRUS BRONCHIOLITIS [None]
